FAERS Safety Report 10399117 (Version 3)
Quarter: 2014Q4

REPORT INFORMATION
  Report Type: Report from Study
  Country: SI (occurrence: SI)
  Receive Date: 20140821
  Receipt Date: 20141126
  Transmission Date: 20150528
  Serious: Yes (Hospitalization, Other)
  Sender: FDA-Public Use
  Company Number: PHHY2014SI101987

PATIENT
  Sex: Female

DRUGS (4)
  1. LACIPIL [Concomitant]
     Active Substance: LACIDIPINE
     Indication: BLOOD PRESSURE INCREASED
     Dosage: 4 MG, Q48H
     Route: 048
     Dates: start: 2010
  2. LORISTA H [Concomitant]
     Indication: BLOOD PRESSURE INCREASED
     Dosage: 50 MG, Q48H
     Route: 048
     Dates: start: 2010
  3. EXTAVIA [Suspect]
     Active Substance: INTERFERON BETA-1B
     Indication: MULTIPLE SCLEROSIS
     Dosage: 1 ML, Q48H
     Route: 058
     Dates: start: 201301, end: 20141102
  4. CONCOR [Concomitant]
     Active Substance: BISOPROLOL FUMARATE
     Indication: HEART RATE INCREASED
     Dosage: 10 MG, Q48H
     Route: 048
     Dates: start: 2011

REACTIONS (1)
  - Gait disturbance [Not Recovered/Not Resolved]

NARRATIVE: CASE EVENT DATE: 201401
